FAERS Safety Report 24708842 (Version 2)
Quarter: 2024Q4

REPORT INFORMATION
  Report Type: Report from Study
  Country: PE (occurrence: PE)
  Receive Date: 20241207
  Receipt Date: 20241213
  Transmission Date: 20250114
  Serious: Yes (Other)
  Sender: AMGEN
  Company Number: PE-AMGEN-PERSL2024237513

PATIENT
  Age: 37 Year
  Sex: Female

DRUGS (1)
  1. ADALIMUMAB [Suspect]
     Active Substance: ADALIMUMAB
     Indication: Axial spondyloarthritis
     Dosage: 40 MILLIGRAM, Q2WK (EVERY 15 DAYS)
     Route: 058
     Dates: start: 20230417

REACTIONS (2)
  - Immunosuppression [Not Recovered/Not Resolved]
  - Bronchitis [Not Recovered/Not Resolved]

NARRATIVE: CASE EVENT DATE: 20240101
